FAERS Safety Report 8549066-8 (Version None)
Quarter: 2012Q3

REPORT INFORMATION
  Report Type: 
  Country: None (occurrence: None)
  Receive Date: 20120730
  Receipt Date: 20120727
  Transmission Date: 20120928
  Serious: No
  Sender: FDA-Public Use
  Company Number: US-PFIZER INC-2012182904

PATIENT
  Sex: Male
  Weight: 86.168 kg

DRUGS (3)
  1. NICOTROL [Suspect]
     Indication: SMOKING CESSATION THERAPY
     Dosage: UNK, AS NEEDED
     Route: 048
     Dates: start: 20120301, end: 20120101
  2. PROZAC [Concomitant]
     Dosage: UNK
  3. GEODON [Concomitant]
     Dosage: UNK

REACTIONS (1)
  - DRUG INEFFECTIVE [None]
